FAERS Safety Report 8617345-1 (Version None)
Quarter: 2012Q3

REPORT INFORMATION
  Report Type: 
  Country: None (occurrence: None)
  Receive Date: 20120823
  Receipt Date: 20120815
  Transmission Date: 20120928
  Serious: Yes (Hospitalization, Disabling, Other)
  Sender: FDA-Public Use
  Company Number: US-009507513-1206USA04953

PATIENT

DRUGS (2)
  1. FOSAMAX [Suspect]
     Indication: OSTEOPOROSIS PROPHYLAXIS
     Dosage: 70 MG, QW
     Route: 048
     Dates: start: 20050101, end: 20100309
  2. ALENDRONATE SODIUM [Suspect]
     Dosage: 70 MG, QW
     Dates: start: 20100218

REACTIONS (19)
  - INTRAMEDULLARY ROD INSERTION [None]
  - BIOPSY [None]
  - HYPERTENSION [None]
  - OSTEOPOROSIS [None]
  - MYOCARDIAL INFARCTION [None]
  - THROMBOSIS [None]
  - PRURITUS [None]
  - FEMUR FRACTURE [None]
  - URINARY RETENTION POSTOPERATIVE [None]
  - EAR DISCOMFORT [None]
  - LOW TURNOVER OSTEOPATHY [None]
  - CORONARY ARTERY BYPASS [None]
  - CATHETERISATION CARDIAC [None]
  - STRESS FRACTURE [None]
  - DEPRESSION [None]
  - DYSPNOEA [None]
  - HYPERCHOLESTEROLAEMIA [None]
  - CONSTIPATION [None]
  - MULTIPLE FRACTURES [None]
